FAERS Safety Report 9460105 (Version 3)
Quarter: 2013Q3

REPORT INFORMATION
  Report Type: Spontaneous
  Country: DK (occurrence: DK)
  Receive Date: 20130815
  Receipt Date: 20130918
  Transmission Date: 20140515
  Serious: Yes (Other)
  Sender: FDA-Public Use
  Company Number: PHHY2013DK085175

PATIENT
  Sex: Female

DRUGS (6)
  1. EPIRUBICIN [Suspect]
     Indication: BREAST CANCER
  2. EPIRUBICIN [Suspect]
     Dosage: 3 DF, UNK
     Route: 065
  3. TAMOXIFEN [Suspect]
     Indication: BREAST CANCER
  4. HERCEPTIN [Suspect]
     Indication: BREAST CANCER
  5. SENDOXAN [Suspect]
     Indication: BREAST CANCER
     Dosage: 3 DF, UNK
     Route: 065
  6. TAXOTERE [Suspect]
     Indication: BREAST CANCER
     Dosage: 3 DF, UNK

REACTIONS (5)
  - Headache [Unknown]
  - Metastases to central nervous system [Unknown]
  - Metastases to lung [Unknown]
  - Metastases to liver [Unknown]
  - Malignant neoplasm progression [Unknown]
